FAERS Safety Report 8487503-8 (Version None)
Quarter: 2012Q3

REPORT INFORMATION
  Report Type: 
  Country: None (occurrence: None)
  Receive Date: 20120705
  Receipt Date: 20120627
  Transmission Date: 20120928
  Serious: Yes (Other)
  Sender: FDA-Public Use
  Company Number: BR-US-EMD SERONO, INC.-7143843

PATIENT
  Sex: Male

DRUGS (2)
  1. REBIF [Suspect]
     Indication: RELAPSING-REMITTING MULTIPLE SCLEROSIS
     Dates: start: 20090801
  2. REBIF [Suspect]

REACTIONS (5)
  - FEMUR FRACTURE [None]
  - FALL [None]
  - PYREXIA [None]
  - CALLUS FORMATION DELAYED [None]
  - BALANCE DISORDER [None]
